FAERS Safety Report 23535563 (Version 1)
Quarter: 2024Q1

REPORT INFORMATION
  Report Type: Spontaneous
  Country: US (occurrence: US)
  Receive Date: 20240218
  Receipt Date: 20240218
  Transmission Date: 20240410
  Serious: No
  Sender: FDA-Public Use
  Company Number: US-ELI_LILLY_AND_COMPANY-US202402008166

PATIENT
  Age: 62 Year
  Sex: Female

DRUGS (1)
  1. EMGALITY [Suspect]
     Active Substance: GALCANEZUMAB-GNLM
     Indication: Product used for unknown indication
     Dosage: 120 MG, UNKNOWN
     Route: 065
     Dates: start: 20240208

REACTIONS (10)
  - Feeling hot [Unknown]
  - Headache [Not Recovered/Not Resolved]
  - Blood pressure increased [Unknown]
  - Mydriasis [Unknown]
  - Nausea [Unknown]
  - Fatigue [Unknown]
  - Asthenopia [Unknown]
  - Dizziness [Unknown]
  - Muscular weakness [Unknown]
  - Nervousness [Unknown]

NARRATIVE: CASE EVENT DATE: 20240208
